FAERS Safety Report 13902010 (Version 1)
Quarter: 2017Q3

REPORT INFORMATION
  Report Type: Report from Study
  Country: None (occurrence: GB)
  Receive Date: 20170824
  Receipt Date: 20170824
  Transmission Date: 20171127
  Serious: Yes (Hospitalization)
  Sender: FDA-Public Use
  Company Number: GB-ABBVIE-17P-167-1838978-00

PATIENT
  Sex: Female
  Weight: 50.8 kg

DRUGS (2)
  1. APREMILAST [Concomitant]
     Active Substance: APREMILAST
     Indication: PRODUCT USED FOR UNKNOWN INDICATION
     Dates: start: 20170516
  2. HUMIRA [Suspect]
     Active Substance: ADALIMUMAB
     Indication: PSORIASIS
     Route: 058
     Dates: start: 20160405, end: 20161031

REACTIONS (8)
  - Sputum discoloured [Unknown]
  - Oxygen saturation decreased [Unknown]
  - Lower respiratory tract infection [Unknown]
  - Painful respiration [Unknown]
  - Pneumonia [Unknown]
  - Nasopharyngitis [Unknown]
  - Wheezing [Unknown]
  - Respiratory tract infection [Unknown]

NARRATIVE: CASE EVENT DATE: 2016
